FAERS Safety Report 5202483-6 (Version None)
Quarter: 2006Q4

REPORT INFORMATION
  Report Type: 
  Country: None (occurrence: None)
  Receive Date: 20061010
  Receipt Date: 20060719
  Transmission Date: 20070319
  Serious: Yes (Hospitalization)
  Sender: FDA-Public Use
  Company Number: SPV1-2006-00241

PATIENT
  Age: 18 Year
  Sex: Male
  Weight: 74.8 kg

DRUGS (2)
  1. EQUETRO [Suspect]
     Indication: INTERMITTENT EXPLOSIVE DISORDER
     Dosage: ORAL
     Route: 048
     Dates: start: 20060501, end: 20060101
  2. LITHIUM CARBONATE [Concomitant]

REACTIONS (1)
  - STEVENS-JOHNSON SYNDROME [None]
